FAERS Safety Report 6579139-0 (Version None)
Quarter: 2010Q1

REPORT INFORMATION
  Report Type: 
  Country: None (occurrence: None)
  Receive Date: 20100212
  Receipt Date: 20100201
  Transmission Date: 20100710
  Serious: Yes (Other)
  Sender: FDA-Public Use
  Company Number: GB-JNJFOC-20091007326

PATIENT
  Age: 62 Year
  Sex: Female

DRUGS (4)
  1. REMICADE [Suspect]
     Indication: RHEUMATOID ARTHRITIS
     Route: 042
  2. METHOTREXATE [Concomitant]
  3. FOLIC ACID [Concomitant]
  4. DICLOFENAC [Concomitant]
     Dosage: STARTED PRIOR TO 2000

REACTIONS (2)
  - INTERSTITIAL LUNG DISEASE [None]
  - LUNG ADENOCARCINOMA [None]
